FAERS Safety Report 6375196-5 (Version None)
Quarter: 2009Q3

REPORT INFORMATION
  Report Type: 
  Country: None (occurrence: None)
  Receive Date: 20090922
  Receipt Date: 20090922
  Transmission Date: 20100115
  Serious: No
  Sender: FDA-Public Use
  Company Number: None

PATIENT
  Age: 57 Year
  Sex: Male
  Weight: 102.0593 kg

DRUGS (1)
  1. SYMBICORT [Suspect]
     Indication: RESPIRATORY TRACT INFECTION
     Dosage: 160/4.5  2 TIMES DAY INHAL
     Route: 055
     Dates: start: 20081120, end: 20090210

REACTIONS (2)
  - BLINDNESS UNILATERAL [None]
  - CATARACT [None]
